FAERS Safety Report 20517456 (Version 3)
Quarter: 2022Q1

REPORT INFORMATION
  Report Type: Report from Study
  Country: US (occurrence: US)
  Receive Date: 20220225
  Receipt Date: 20220325
  Transmission Date: 20220423
  Serious: Yes (Hospitalization, Other)
  Sender: FDA-Public Use
  Company Number: US-JNJFOC-20220153198

PATIENT
  Sex: Female
  Weight: 54.5 kg

DRUGS (4)
  1. MACITENTAN [Suspect]
     Active Substance: MACITENTAN
     Indication: Pulmonary arterial hypertension
     Route: 048
  2. MACITENTAN [Suspect]
     Active Substance: MACITENTAN
     Route: 048
  3. ELIQUIS [Concomitant]
     Active Substance: APIXABAN
     Indication: Product used for unknown indication
  4. COUMADIN [Concomitant]
     Active Substance: WARFARIN SODIUM

REACTIONS (31)
  - Catheterisation cardiac [Unknown]
  - Hospitalisation [Unknown]
  - Cerebrovascular accident [Unknown]
  - Syncope [Not Recovered/Not Resolved]
  - Cataract [Not Recovered/Not Resolved]
  - Mastectomy [Unknown]
  - Lymphadenectomy [Unknown]
  - Endocrine gland operation [Unknown]
  - Device occlusion [Unknown]
  - Dyspnoea [Unknown]
  - Skin disorder [Unknown]
  - Constipation [Not Recovered/Not Resolved]
  - Muscle spasms [Not Recovered/Not Resolved]
  - Nasopharyngitis [Unknown]
  - Dry mouth [Unknown]
  - Chapped lips [Unknown]
  - Osteoporosis [Unknown]
  - Blood pressure fluctuation [Unknown]
  - Urine output decreased [Unknown]
  - Discharge [Unknown]
  - Spinal pain [Unknown]
  - Gastric disorder [Unknown]
  - Inflammation [Unknown]
  - Swelling [Unknown]
  - Pruritus [Unknown]
  - Abdominal discomfort [Unknown]
  - Yellow skin [Unknown]
  - Ocular icterus [Unknown]
  - Urinary tract infection [Unknown]
  - Secretion discharge [Unknown]
  - Pain [Unknown]

NARRATIVE: CASE EVENT DATE: 20210101
